FAERS Safety Report 14980040 (Version 1)
Quarter: 2018Q2

REPORT INFORMATION
  Report Type: Spontaneous
  Country: US (occurrence: US)
  Receive Date: 20180606
  Receipt Date: 20180606
  Transmission Date: 20180711
  Serious: Yes (Other)
  Sender: FDA-Public Use
  Company Number: US-SA-2017SA265121

PATIENT
  Age: 62 Year
  Sex: Female
  Weight: 91 kg

DRUGS (6)
  1. TAXOTERE [Suspect]
     Active Substance: DOCETAXEL
     Indication: BREAST CANCER FEMALE
     Dosage: 154 MG,Q3W
     Route: 051
     Dates: start: 20100708, end: 20100708
  2. COSOPT [Concomitant]
     Active Substance: DORZOLAMIDE HYDROCHLORIDE\TIMOLOL MALEATE
     Indication: PRODUCT USED FOR UNKNOWN INDICATION
     Dosage: UNK
     Dates: start: 20030101
  3. TAXOTERE [Suspect]
     Active Substance: DOCETAXEL
     Dosage: 154 MG,Q3W
     Route: 051
     Dates: start: 20100930, end: 20100930
  4. DYAZIDE [Concomitant]
     Active Substance: HYDROCHLOROTHIAZIDE\TRIAMTERENE
     Indication: PRODUCT USED FOR UNKNOWN INDICATION
     Dosage: UNK
     Dates: start: 19750101, end: 20101231
  5. PARAPLATIN [Concomitant]
     Active Substance: CARBOPLATIN
     Indication: PRODUCT USED FOR UNKNOWN INDICATION
     Dosage: 800 MG
  6. ATORVASTATIN [Concomitant]
     Active Substance: ATORVASTATIN
     Indication: PRODUCT USED FOR UNKNOWN INDICATION
     Dosage: UNK
     Dates: start: 20070101, end: 20101231

REACTIONS (6)
  - Impaired quality of life [Unknown]
  - Alopecia [Recovering/Resolving]
  - Emotional distress [Unknown]
  - Pain [Unknown]
  - Psychological trauma [Unknown]
  - Anxiety [Unknown]

NARRATIVE: CASE EVENT DATE: 20110330
